FAERS Safety Report 7530206-4 (Version None)
Quarter: 2011Q2

REPORT INFORMATION
  Report Type: 
  Country: None (occurrence: None)
  Receive Date: 20110607
  Receipt Date: 20110523
  Transmission Date: 20111010
  Serious: Yes (Hospitalization)
  Sender: FDA-Public Use
  Company Number: B0721182A

PATIENT
  Age: 70 Year
  Sex: Male

DRUGS (1)
  1. NICOTINE [Suspect]
     Dosage: 1LOZ PER DAY
     Route: 002
     Dates: start: 20110201, end: 20110201

REACTIONS (2)
  - DYSPEPSIA [None]
  - CHEST PAIN [None]
